FAERS Safety Report 19361639 (Version 2)
Quarter: 2021Q2

REPORT INFORMATION
  Report Type: Report from Study
  Country: US (occurrence: US)
  Receive Date: 20210601
  Receipt Date: 20210610
  Transmission Date: 20210717
  Serious: Yes (Hospitalization, Other)
  Sender: FDA-Public Use
  Company Number: US-SHIRE-US201902056

PATIENT
  Age: 65 Year
  Sex: Female

DRUGS (1)
  1. HUMAN IMMUNOGLOBULIN; HYALURONIDASE [Suspect]
     Active Substance: HUMAN IMMUNOGLOBULIN G\HYALURONIDASE RECOMBINANT HUMAN
     Indication: PRIMARY IMMUNODEFICIENCY SYNDROME
     Dosage: UNK
     Route: 065

REACTIONS (10)
  - Illness [Unknown]
  - Pain [Unknown]
  - Blood iron decreased [Unknown]
  - Infusion site induration [Unknown]
  - Headache [Unknown]
  - Hypersensitivity [Unknown]
  - Fall [Unknown]
  - Joint injury [Unknown]
  - Pneumonia [Unknown]
  - Coronavirus infection [Unknown]

NARRATIVE: CASE EVENT DATE: 20210526
